FAERS Safety Report 21247168 (Version 1)
Quarter: 2022Q3

REPORT INFORMATION
  Report Type: Spontaneous
  Country: US (occurrence: None)
  Receive Date: 20220823
  Receipt Date: 20220823
  Transmission Date: 20221027
  Serious: Yes (Hospitalization)
  Sender: FDA-Public Use
  Company Number: None

PATIENT
  Age: 54 Year
  Sex: Male

DRUGS (1)
  1. BEBTELOVIMAB [Suspect]
     Active Substance: BEBTELOVIMAB
     Indication: COVID-19 treatment

REACTIONS (4)
  - Grunting [None]
  - Wheezing [None]
  - Oxygen saturation decreased [None]
  - Dizziness [None]

NARRATIVE: CASE EVENT DATE: 20220815
